FAERS Safety Report 4470054-5 (Version None)
Quarter: 2004Q3

REPORT INFORMATION
  Report Type: 
  Country: None (occurrence: None)
  Receive Date: 20040920
  Receipt Date: 20040706
  Transmission Date: 20050211
  Serious: Yes (Other)
  Sender: FDA-Public Use
  Company Number: PHEH2004US07297

PATIENT
  Sex: Male

DRUGS (1)
  1. ZOMETA [Suspect]
     Dosage: MONTHLY, INTRAVENOUS
     Route: 042
     Dates: start: 20030201, end: 20040201

REACTIONS (3)
  - BONE DEBRIDEMENT [None]
  - MOUTH ULCERATION [None]
  - OSTEONECROSIS [None]
